FAERS Safety Report 4981575-0 (Version None)
Quarter: 2006Q2

REPORT INFORMATION
  Report Type: 
  Country: None (occurrence: None)
  Receive Date: 20060420
  Receipt Date: 20060420
  Transmission Date: 20061013
  Serious: Yes (Hospitalization)
  Sender: FDA-Public Use
  Company Number: None

PATIENT
  Age: 76 Year
  Sex: Male
  Weight: 72.8 kg

DRUGS (21)
  1. KETOROLAC TROMETHAMINE [Suspect]
  2. FORMOTEROL FUMARATE [Concomitant]
  3. CAPSAICIN [Concomitant]
  4. IPRATROPIUM BROMIDE [Concomitant]
  5. ALBUTEROL [Concomitant]
  6. LEVOTHYROXINE SODIUM [Concomitant]
  7. MULTIVITAMINS WITH ZINC [Concomitant]
  8. DORZOLAMIDE HCL [Concomitant]
  9. SPIRONOLACTONE [Concomitant]
  10. FUROSEMIDE [Concomitant]
  11. PSYLLIUM [Concomitant]
  12. TRAVOPROST [Concomitant]
  13. TAMSULOSIN HCL [Concomitant]
  14. SIMVASTATIN [Concomitant]
  15. OMEPRAZOLE [Concomitant]
  16. CARVEDILOL [Concomitant]
  17. BISACODYL [Concomitant]
  18. ASPIRIN [Concomitant]
  19. FLUNISOLIDE [Concomitant]
  20. NYSTATIN [Concomitant]
  21. ALPRAZOLAM [Concomitant]

REACTIONS (3)
  - HEPATIC ENZYME ABNORMAL [None]
  - RENAL IMPAIRMENT [None]
  - RHABDOMYOLYSIS [None]
